FAERS Safety Report 4698341-6 (Version None)
Quarter: 2005Q2

REPORT INFORMATION
  Report Type: 
  Country: None (occurrence: None)
  Receive Date: 20050621
  Receipt Date: 20050609
  Transmission Date: 20051028
  Serious: Yes (Life-Threatening, Hospitalization)
  Sender: FDA-Public Use
  Company Number: BRO-008698

PATIENT
  Age: 86 Year
  Sex: Female

DRUGS (6)
  1. IOPAMIDOL-300 [Suspect]
     Indication: COMPUTERISED TOMOGRAM ABDOMEN
     Dosage: 80 ML IV
     Route: 042
     Dates: start: 20050511, end: 20050511
  2. HALCION [Concomitant]
  3. ZANTAC [Concomitant]
  4. NEUER, (CETRAXATE HYDROCHLORIDE) [Concomitant]
  5. NICARDIPINE HCL [Concomitant]
  6. BUFFERIN [Concomitant]

REACTIONS (4)
  - ANAPHYLACTIC SHOCK [None]
  - BLOOD PRESSURE IMMEASURABLE [None]
  - HAEMATEMESIS [None]
  - LOSS OF CONSCIOUSNESS [None]
